FAERS Safety Report 24878255 (Version 1)
Quarter: 2025Q1

REPORT INFORMATION
  Report Type: Spontaneous
  Country: ES (occurrence: ES)
  Receive Date: 20250123
  Receipt Date: 20250123
  Transmission Date: 20250409
  Serious: No
  Sender: ASTELLAS
  Company Number: ES-ASTELLAS-2025-AER-003858

PATIENT
  Age: 53 Year
  Sex: Female

DRUGS (2)
  1. VEOZAH [Suspect]
     Active Substance: FEZOLINETANT
     Indication: Hot flush
     Dosage: 2 AND A HALF MONTHS
     Route: 050
     Dates: start: 2024
  2. QUVIVIQ [Concomitant]
     Active Substance: DARIDOREXANT
     Indication: Insomnia
     Route: 065
     Dates: start: 2024

REACTIONS (2)
  - Breast discomfort [Unknown]
  - Fluid retention [Unknown]
